FAERS Safety Report 5534623-3 (Version None)
Quarter: 2007Q4

REPORT INFORMATION
  Report Type: 
  Country: None (occurrence: None)
  Receive Date: 20071205
  Receipt Date: 20071129
  Transmission Date: 20080405
  Serious: Yes (Hospitalization)
  Sender: FDA-Public Use
  Company Number: FR-JNJFOC-20071110458

PATIENT
  Sex: Female

DRUGS (9)
  1. HALDOL [Suspect]
     Indication: PSYCHOTIC DISORDER
  2. RISPERDAL [Suspect]
     Indication: PSYCHOTIC DISORDER
  3. NOZINAN [Suspect]
     Indication: PSYCHOTIC DISORDER
     Route: 048
  4. DIAMICRON [Concomitant]
     Indication: DRUG USE FOR UNKNOWN INDICATION
  5. LEPTICUR [Concomitant]
     Indication: DRUG USE FOR UNKNOWN INDICATION
  6. FORLAX [Concomitant]
     Indication: DRUG USE FOR UNKNOWN INDICATION
  7. TRANXENE [Concomitant]
     Indication: DRUG USE FOR UNKNOWN INDICATION
  8. CHLORYDRATE DE CLOMIPRAMINE [Concomitant]
     Indication: DRUG USE FOR UNKNOWN INDICATION
  9. GLUCOPHAGE [Concomitant]
     Indication: DRUG USE FOR UNKNOWN INDICATION

REACTIONS (8)
  - ANXIETY [None]
  - BLOOD GLUCOSE DECREASED [None]
  - CONVULSION [None]
  - HYPONATRAEMIA [None]
  - INTESTINAL OBSTRUCTION [None]
  - PROTEIN TOTAL INCREASED [None]
  - URINARY RETENTION [None]
  - WATER INTOXICATION [None]
